FAERS Safety Report 6546376-0 (Version None)
Quarter: 2010Q1

REPORT INFORMATION
  Report Type: 
  Country: None (occurrence: None)
  Receive Date: 20100122
  Receipt Date: 20100113
  Transmission Date: 20100710
  Serious: Yes (Hospitalization, Other)
  Sender: FDA-Public Use
  Company Number: FR-ROXANE LABORATORIES, INC.-2010-RO-00014RO

PATIENT
  Age: 59 Year
  Sex: Male
  Weight: 51 kg

DRUGS (11)
  1. FLUTICASONE [Suspect]
     Indication: ASTHMA
     Dosage: 1500 MCG
     Route: 055
     Dates: start: 20080101
  2. FLUTICASONE [Suspect]
     Dosage: 1000 MCG
     Route: 055
     Dates: end: 20080101
  3. ZIDOVUDINE [Suspect]
     Indication: HIV INFECTION
     Dosage: 600 MG
  4. ATZ [Suspect]
     Indication: HIV INFECTION
     Dosage: 300 MG
  5. RITONAVIR [Suspect]
     Indication: HIV INFECTION
     Dosage: 100 MG
  6. LAMIVUDINE [Suspect]
     Indication: HIV INFECTION
     Dosage: 300 MG
  7. LOPINAVIR [Suspect]
     Indication: HIV INFECTION
  8. INSULIN [Concomitant]
     Indication: DIABETES MELLITUS
  9. INVIRASE [Concomitant]
     Indication: HIV INFECTION
  10. SYNACTHEN [Concomitant]
     Indication: BLOOD CORTISOL DECREASED
     Route: 030
  11. HYDROCORTISONE [Concomitant]
     Indication: BLOOD CORTISOL DECREASED

REACTIONS (5)
  - ADRENAL INSUFFICIENCY [None]
  - CUSHING'S SYNDROME [None]
  - DIABETES MELLITUS [None]
  - HYPOGLYCAEMIA [None]
  - KETOSIS [None]
